FAERS Safety Report 23462706 (Version 2)
Quarter: 2024Q1

REPORT INFORMATION
  Report Type: Spontaneous
  Country: US (occurrence: US)
  Receive Date: 20240131
  Receipt Date: 20240203
  Transmission Date: 20240409
  Serious: No
  Sender: FDA-Public Use
  Company Number: US-ABBVIE-5611665

PATIENT
  Age: 69 Year
  Sex: Female
  Weight: 50 kg

DRUGS (2)
  1. ALPHAGAN P [Suspect]
     Active Substance: BRIMONIDINE TARTRATE
     Indication: Glaucoma
     Dosage: FORM STRENGTH : 1 MILLIGRAM, STOPPED FOR A FEW DAYS
     Route: 047
     Dates: start: 202311
  2. ZIOPTAN [Concomitant]
     Active Substance: TAFLUPROST
     Indication: Glaucoma

REACTIONS (3)
  - Hordeolum [Not Recovered/Not Resolved]
  - Vision blurred [Unknown]
  - Dry mouth [Unknown]

NARRATIVE: CASE EVENT DATE: 20240101
